FAERS Safety Report 5014503-2 (Version None)
Quarter: 2006Q2

REPORT INFORMATION
  Report Type: 
  Country: None (occurrence: None)
  Receive Date: 20060531
  Receipt Date: 20060517
  Transmission Date: 20061013
  Serious: Yes (Hospitalization)
  Sender: FDA-Public Use
  Company Number: DE-AMGEN-UK180118

PATIENT
  Sex: Female
  Weight: 82 kg

DRUGS (2)
  1. KINERET [Suspect]
     Indication: RHEUMATOID ARTHRITIS
     Route: 058
     Dates: start: 20020424, end: 20060201
  2. PREDNISOLONE [Suspect]
     Route: 048
     Dates: start: 19910101

REACTIONS (2)
  - OSTEITIS DEFORMANS [None]
  - POSTOPERATIVE WOUND COMPLICATION [None]
